FAERS Safety Report 10080549 (Version 5)
Quarter: 2015Q2

REPORT INFORMATION
  Report Type: Spontaneous
  Country: AR (occurrence: AR)
  Receive Date: 20140416
  Receipt Date: 20150602
  Transmission Date: 20150821
  Serious: Yes (Hospitalization, Other)
  Sender: FDA-Public Use
  Company Number: AR-AMGEN INC.-ARGSP2014027549

PATIENT
  Age: 55 Year
  Sex: Female

DRUGS (3)
  1. ENBREL [Suspect]
     Active Substance: ETANERCEPT
     Indication: RHEUMATOID ARTHRITIS
     Dosage: 50 MG, WEEKLY
     Route: 065
     Dates: start: 20131215, end: 20140129
  2. ENBREL [Suspect]
     Active Substance: ETANERCEPT
     Dosage: 50 MG, WEEKLY
     Route: 065
     Dates: start: 201503
  3. ARTRAIT                            /00113801/ [Suspect]
     Active Substance: METHOTREXATE SODIUM
     Indication: RHEUMATOID ARTHRITIS
     Dosage: 20 MG, WEEKLY
     Route: 065
     Dates: start: 2009, end: 20140129

REACTIONS (14)
  - Infarction [Not Recovered/Not Resolved]
  - Pancreatitis [Recovered/Resolved]
  - Liver disorder [Recovered/Resolved]
  - Loss of consciousness [Unknown]
  - Spinal cord oedema [Recovered/Resolved]
  - Pain [Recovered/Resolved]
  - Arthritis [Unknown]
  - Local swelling [Not Recovered/Not Resolved]
  - Vomiting [Recovered/Resolved]
  - Gallbladder disorder [Recovered/Resolved]
  - Lung disorder [Unknown]
  - Hepatic cirrhosis [Recovered/Resolved]
  - Arterial occlusive disease [Not Recovered/Not Resolved]
  - Agitation [Not Recovered/Not Resolved]

NARRATIVE: CASE EVENT DATE: 201401
